APPROVED DRUG PRODUCT: PEMETREXED DITROMETHAMINE
Active Ingredient: PEMETREXED DITROMETHAMINE
Strength: EQ 1GM BASE/VIAL
Dosage Form/Route: POWDER;INTRAVENOUS
Application: N208746 | Product #003
Applicant: HOSPIRA INC
Approved: Jun 10, 2022 | RLD: Yes | RS: No | Type: DISCN